FAERS Safety Report 5996689-6 (Version None)
Quarter: 2008Q4

REPORT INFORMATION
  Report Type: 
  Country: None (occurrence: None)
  Receive Date: 20081212
  Receipt Date: 20081022
  Transmission Date: 20090506
  Serious: No
  Sender: FDA-Public Use
  Company Number: US-ABBOTT-08P-163-0483225-00

PATIENT
  Sex: Male

DRUGS (7)
  1. HUMIRA [Suspect]
     Indication: CROHN'S DISEASE
     Route: 058
     Dates: start: 20080101
  2. HUMIRA [Suspect]
     Indication: ARTHRITIS ENTEROPATHIC
  3. MESALAMINE [Concomitant]
     Indication: CROHN'S DISEASE
     Dates: start: 20081022
  4. COLESTYRIMINE [Concomitant]
     Indication: HYPERCHLORHYDRIA
  5. CYANOCOBALAMIN [Concomitant]
     Indication: VITAMIN SUPPLEMENTATION
     Route: 030
  6. METHYLPREDNISOLONE 16MG TAB [Concomitant]
     Indication: CROHN'S DISEASE
     Route: 048
  7. METHYLPREDNISOLONE 16MG TAB [Concomitant]

REACTIONS (3)
  - DIARRHOEA [None]
  - DRUG DOSE OMISSION [None]
  - VOMITING [None]
